FAERS Safety Report 20374778 (Version 3)
Quarter: 2022Q1

REPORT INFORMATION
  Report Type: Report from Study
  Country: GB (occurrence: GB)
  Receive Date: 20220125
  Receipt Date: 20220308
  Transmission Date: 20220423
  Serious: Yes (Hospitalization, Other)
  Sender: FDA-Public Use
  Company Number: GB-GLAXOSMITHKLINE-GB2022EME012971

PATIENT
  Sex: Female

DRUGS (1)
  1. NIRAPARIB [Suspect]
     Active Substance: NIRAPARIB
     Indication: Neoplasm malignant
     Dosage: UNK
     Dates: end: 202201

REACTIONS (6)
  - Palpitations [Recovering/Resolving]
  - Thrombosis [Unknown]
  - Pleural effusion [Unknown]
  - Blood pressure increased [Recovering/Resolving]
  - Dyspnoea exertional [Recovering/Resolving]
  - Insomnia [Recovering/Resolving]
